FAERS Safety Report 14629099 (Version 1)
Quarter: 2018Q1

REPORT INFORMATION
  Report Type: Spontaneous
  Country: US (occurrence: US)
  Receive Date: 20180312
  Receipt Date: 20180312
  Transmission Date: 20180509
  Serious: Yes (Hospitalization)
  Sender: FDA-Public Use
  Company Number: None

PATIENT
  Age: 65 Year
  Sex: Male

DRUGS (1)
  1. PRAZOSIN. [Suspect]
     Active Substance: PRAZOSIN
     Indication: POST-TRAUMATIC EPILEPSY
     Dates: start: 20171208, end: 20171208

REACTIONS (3)
  - Syncope [None]
  - Hypotension [None]
  - Fall [None]

NARRATIVE: CASE EVENT DATE: 20171208
